FAERS Safety Report 6306326-9 (Version None)
Quarter: 2009Q3

REPORT INFORMATION
  Report Type: 
  Country: None (occurrence: None)
  Receive Date: 20090812
  Receipt Date: 20090805
  Transmission Date: 20100115
  Serious: Yes (Other)
  Sender: FDA-Public Use
  Company Number: CN-BAYER-200927331GPV

PATIENT
  Age: 45 Year
  Sex: Female
  Weight: 50 kg

DRUGS (1)
  1. MAGNEVIST [Suspect]
     Indication: DIAGNOSTIC PROCEDURE
     Dosage: TOTAL DAILY DOSE: 20 ML
     Route: 042
     Dates: start: 20090728, end: 20090728

REACTIONS (2)
  - PAIN [None]
  - VASCULITIS [None]
